FAERS Safety Report 6782886-9 (Version None)
Quarter: 2010Q2

REPORT INFORMATION
  Report Type: 
  Country: None (occurrence: None)
  Receive Date: 20100622
  Receipt Date: 20100115
  Transmission Date: 20101027
  Serious: Yes (Hospitalization)
  Sender: FDA-Public Use
  Company Number: US-ASTRAZENECA-2009SE16311

PATIENT
  Age: 416 Month
  Sex: Male
  Weight: 95.3 kg

DRUGS (8)
  1. SEROQUEL [Suspect]
     Indication: BIPOLAR DISORDER
     Route: 048
     Dates: start: 20060301, end: 20070101
  2. SEROQUEL [Suspect]
     Indication: SCHIZOPHRENIA
     Route: 048
     Dates: start: 20060301, end: 20070101
  3. SEROQUEL [Suspect]
     Dosage: 100 TO 200 MG
     Route: 048
     Dates: start: 20060325
  4. SEROQUEL [Suspect]
     Dosage: 100 TO 200 MG
     Route: 048
     Dates: start: 20060325
  5. ZYPREXA [Concomitant]
     Dosage: 10 TO 20 MG
     Dates: start: 20060301
  6. SYMBYAX [Concomitant]
     Dates: start: 20060301
  7. ZETIA [Concomitant]
     Dates: start: 20071025
  8. LITHIUM CARBONATE [Concomitant]
     Dates: start: 20060301

REACTIONS (4)
  - BLOOD CHOLESTEROL INCREASED [None]
  - DIABETIC COMPLICATION [None]
  - HYPERLIPIDAEMIA [None]
  - TYPE 1 DIABETES MELLITUS [None]
